FAERS Safety Report 12724988 (Version 4)
Quarter: 2017Q1

REPORT INFORMATION
  Report Type: Report from Study
  Country: CA (occurrence: CA)
  Receive Date: 20160908
  Receipt Date: 20170224
  Transmission Date: 20170428
  Serious: Yes (Hospitalization)
  Sender: FDA-Public Use
  Company Number: CA-HLSUS-2016-CA-000309

PATIENT
  Age: 68 Year
  Sex: Male
  Weight: 59 kg

DRUGS (12)
  1. CLOZARIL [Suspect]
     Active Substance: CLOZAPINE
     Indication: SCHIZOPHRENIA
     Route: 048
     Dates: start: 20040402
  2. PLAVIX [Concomitant]
     Active Substance: CLOPIDOGREL BISULFATE
     Dosage: 75 MG TWICE A DAY
     Dates: start: 20160708
  3. SENOKOT [Concomitant]
     Active Substance: SENNOSIDES
     Dosage: 8.6 G TWICE A DAY
     Route: 048
     Dates: start: 20150525
  4. COLACE [Concomitant]
     Active Substance: DOCUSATE SODIUM
     Dosage: 1 TO 2 CAP NIGHT IF REQ
     Route: 048
     Dates: start: 20160705
  5. IRON [Concomitant]
     Active Substance: IRON
     Dosage: 300 G TWICE A DAY
     Route: 048
     Dates: start: 20160705
  6. ABILIFY [Concomitant]
     Active Substance: ARIPIPRAZOLE
     Dosage: 30 MG PER DAY
     Route: 048
     Dates: start: 20160420
  7. LIPIODOL [Concomitant]
     Active Substance: ETHIODIZED OIL
     Dosage: 160 G PER DAY
     Route: 048
     Dates: start: 20150917
  8. ATROPINE. [Concomitant]
     Active Substance: ATROPINE
     Dosage: AT BED TIME
     Dates: start: 20160420
  9. SEROQUEL [Concomitant]
     Active Substance: QUETIAPINE FUMARATE
     Dosage: 25 MG AT BED TIME
     Route: 048
     Dates: start: 20160420
  10. ATIVAN [Concomitant]
     Active Substance: LORAZEPAM
     Dosage: 2 MG TWICE A DAY IF REQ
     Route: 048
     Dates: start: 20160601
  11. KEMADRIN [Concomitant]
     Active Substance: PROCYCLIDINE HYDROCHLORIDE
     Dosage: 2.5 G TWICE A DAY
     Route: 048
     Dates: start: 20160420
  12. RAPAFLO [Concomitant]
     Active Substance: SILODOSIN
     Dosage: 8 MG TWICE A DAY
     Route: 048
     Dates: start: 20150917

REACTIONS (5)
  - Metastasis [Unknown]
  - Bacteraemia [Unknown]
  - Colon neoplasm [Unknown]
  - Pyrexia [Unknown]
  - Abdominal infection [Unknown]

NARRATIVE: CASE EVENT DATE: 20160713
